FAERS Safety Report 13150987 (Version 1)
Quarter: 2017Q1

REPORT INFORMATION
  Report Type: Spontaneous
  Country: US (occurrence: US)
  Receive Date: 20170125
  Receipt Date: 20170125
  Transmission Date: 20170428
  Serious: No
  Sender: FDA-Public Use
  Company Number: US-GLAXOSMITHKLINE-US2017009560

PATIENT
  Age: 61 Year
  Sex: Male

DRUGS (7)
  1. GLIMEPIRIDE. [Concomitant]
     Active Substance: GLIMEPIRIDE
  2. LISINOPRIL. [Concomitant]
     Active Substance: LISINOPRIL
  3. SPIRONOLACTONE. [Concomitant]
     Active Substance: SPIRONOLACTONE
  4. BREO ELLIPTA [Suspect]
     Active Substance: FLUTICASONE FUROATE\VILANTEROL TRIFENATATE
     Indication: DYSPNOEA EXERTIONAL
     Dosage: 1 PUFF(S), QD
     Route: 055
     Dates: start: 20161226
  5. CARVEDILOL. [Concomitant]
     Active Substance: CARVEDILOL
  6. FUROSEMIDE. [Concomitant]
     Active Substance: FUROSEMIDE
  7. ASPIRIN (BABY) [Concomitant]
     Active Substance: ASPIRIN

REACTIONS (2)
  - Blood glucose increased [Not Recovered/Not Resolved]
  - Product use issue [Not Recovered/Not Resolved]

NARRATIVE: CASE EVENT DATE: 20161226
